FAERS Safety Report 11677190 (Version 1)
Quarter: 2015Q4

REPORT INFORMATION
  Report Type: Spontaneous
  Country: US (occurrence: US)
  Receive Date: 20151027
  Receipt Date: 20151027
  Transmission Date: 20160304
  Serious: No
  Sender: FDA-Public Use
  Company Number: US-ELI_LILLY_AND_COMPANY-US201009006579

PATIENT
  Age: 65 Year
  Sex: Male

DRUGS (2)
  1. FORTEO [Suspect]
     Active Substance: TERIPARATIDE
     Indication: OSTEOPOROSIS
     Dosage: 20 UG, DAILY (1/D)
     Route: 065
     Dates: start: 20100910
  2. FORTEO [Suspect]
     Active Substance: TERIPARATIDE
     Dosage: 20 UG, DAILY (1/D)
     Route: 065
     Dates: start: 201009

REACTIONS (7)
  - Arthralgia [Recovered/Resolved]
  - Eye pruritus [Unknown]
  - Fatigue [Unknown]
  - Myalgia [Recovered/Resolved]
  - Hypersensitivity [Unknown]
  - Muscle tightness [Unknown]
  - Sluggishness [Unknown]

NARRATIVE: CASE EVENT DATE: 20100914
